FAERS Safety Report 7572333-1 (Version None)
Quarter: 2011Q2

REPORT INFORMATION
  Report Type: 
  Country: None (occurrence: None)
  Receive Date: 20110624
  Receipt Date: 20110620
  Transmission Date: 20111010
  Serious: Yes (Death)
  Sender: FDA-Public Use
  Company Number: PHHY2011MX42477

PATIENT
  Sex: Female

DRUGS (1)
  1. DIOVAN [Suspect]
     Indication: HYPERTENSION
     Dosage: 80 MG, 1 TABLET DAILY
     Dates: start: 20050101

REACTIONS (3)
  - RESPIRATORY ARREST [None]
  - DEMENTIA ALZHEIMER'S TYPE [None]
  - DYSPHAGIA [None]
